FAERS Safety Report 7335318-6 (Version None)
Quarter: 2011Q1

REPORT INFORMATION
  Report Type: 
  Country: None (occurrence: None)
  Receive Date: 20110307
  Receipt Date: 20110222
  Transmission Date: 20110831
  Serious: Yes (Hospitalization, Other)
  Sender: FDA-Public Use
  Company Number: PHEH2007US03406

PATIENT
  Sex: Male

DRUGS (28)
  1. DECORTIN [Concomitant]
  2. LOPID [Concomitant]
  3. TRAZODONE [Concomitant]
  4. ZOMETA [Suspect]
  5. MULTIPLE VITAMINS [Concomitant]
  6. FISH OIL [Concomitant]
     Dosage: 500 MG, UNK
  7. ANDROGEL [Concomitant]
     Dosage: UNK
  8. OXYCODONE [Concomitant]
  9. AREDIA [Suspect]
  10. HYDROCORTISONE [Concomitant]
  11. MORPHINE [Concomitant]
     Dosage: UNK
  12. LOPID [Concomitant]
  13. ASPIRIN [Concomitant]
  14. INFLUENZA VIRUS VACCINE [Concomitant]
  15. NEURONTIN [Concomitant]
  16. DOXYCYCLINE [Concomitant]
  17. TESTIM [Concomitant]
     Dosage: UNK
  18. METAMUCIL-2 [Concomitant]
     Dosage: 0.52 G, UNK
  19. ATIVAN [Concomitant]
  20. PRILOSEC [Concomitant]
  21. ATIVAN [Concomitant]
  22. EFFEXOR XR [Concomitant]
     Dosage: 37.5 UNK, UNK
  23. WELLBUTRIN XL [Concomitant]
  24. LEXAPRO [Concomitant]
  25. ACETAMINOPHEN [Concomitant]
  26. ZOLOFT [Concomitant]
  27. PROPRANOLOL [Concomitant]
  28. ASPIRIN [Concomitant]

REACTIONS (57)
  - UMBILICAL HERNIA [None]
  - PAIN [None]
  - DEEP VEIN THROMBOSIS [None]
  - COMPRESSION FRACTURE [None]
  - DYSPNOEA [None]
  - THROMBOCYTOSIS [None]
  - LUNG NEOPLASM [None]
  - DYSTROPHIC CALCIFICATION [None]
  - ANXIETY [None]
  - COUGH [None]
  - MUSCLE STRAIN [None]
  - DECREASED INTEREST [None]
  - OSTEONECROSIS [None]
  - NEUROPATHY PERIPHERAL [None]
  - SPINAL OSTEOARTHRITIS [None]
  - CHEST DISCOMFORT [None]
  - STRESS [None]
  - BACK PAIN [None]
  - PLASMACYTOSIS [None]
  - HEPATIC STEATOSIS [None]
  - FACET JOINT SYNDROME [None]
  - HYPERCHOLESTEROLAEMIA [None]
  - SOFT TISSUE DISORDER [None]
  - BACTERIAL INFECTION [None]
  - OSTEONECROSIS OF JAW [None]
  - INFLAMMATION [None]
  - ERECTILE DYSFUNCTION [None]
  - NAUSEA [None]
  - VOMITING [None]
  - FATIGUE [None]
  - INTERVERTEBRAL DISC DEGENERATION [None]
  - POST HERPETIC NEURALGIA [None]
  - FISTULA [None]
  - OSTEOLYSIS [None]
  - MYELODYSPLASTIC SYNDROME [None]
  - PANCYTOPENIA [None]
  - ATELECTASIS [None]
  - URTICARIA [None]
  - ESSENTIAL TREMOR [None]
  - METASTASES TO BONE [None]
  - ANAEMIA [None]
  - DEPRESSION [None]
  - HEADACHE [None]
  - WEIGHT DECREASED [None]
  - FLATULENCE [None]
  - DYSPEPSIA [None]
  - FEBRILE NEUTROPENIA [None]
  - PERITONEAL DISORDER [None]
  - OSTEOPENIA [None]
  - HYPERTRIGLYCERIDAEMIA [None]
  - GENERAL PHYSICAL HEALTH DETERIORATION [None]
  - FRACTURED SACRUM [None]
  - ABDOMINAL PAIN [None]
  - HERPES ZOSTER [None]
  - CANCER PAIN [None]
  - BONE DISORDER [None]
  - PRIMARY HYPOGONADISM [None]
